FAERS Safety Report 21948127 (Version 5)
Quarter: 2023Q1

REPORT INFORMATION
  Report Type: Spontaneous
  Country: US (occurrence: US)
  Receive Date: 20230203
  Receipt Date: 20230225
  Transmission Date: 20230417
  Serious: No
  Sender: FDA-Public Use
  Company Number: US-UNITED THERAPEUTICS-UNT-2023-000780

PATIENT
  Age: 62 Year
  Sex: Female
  Weight: 99.773 kg

DRUGS (8)
  1. REMODULIN [Suspect]
     Active Substance: TREPROSTINIL
     Indication: Pulmonary arterial hypertension
     Dosage: 0.0025 ?G/KG (SELF-FILLED WITH 1.7 ML/CASSETTE, AT A REMUNITY PUMP RATE OF 16 MCL/HOUR), CONTINUING
     Route: 058
     Dates: start: 20230105
  2. REMODULIN [Suspect]
     Active Substance: TREPROSTINIL
     Dosage: 0.0065 ?G/KG (SELF-FILL CASSETTE WITH 3 ML AT A RATE OF 41 MCL/HOUR), CONTINUING
     Route: 058
     Dates: start: 202301
  3. REMODULIN [Suspect]
     Active Substance: TREPROSTINIL
     Dosage: 0.0125 ?G/KG (SELF FILL CASSETTE WITH 2.7 ML, RATE 31 MCL/HR), CONTINUING
     Route: 058
     Dates: start: 202301
  4. REMODULIN [Suspect]
     Active Substance: TREPROSTINIL
     Indication: Pulmonary arterial hypertension
     Dosage: 0.0125 ?G/KG, CONTINUING (SELF-FILLED WITH 2.7ML PER CASSETTE, PUMP RATE 31MCL/HR)
     Route: 058
  5. REMODULIN [Suspect]
     Active Substance: TREPROSTINIL
     Indication: Pulmonary arterial hypertension
     Dosage: 0.0155 ?G/KG, CONTINUING (SELF-FILLED REMUNITY, 1.9ML PER FILL CASSETTE, AT A RATE OF 19MCL PER HOUR
     Route: 058
  6. UPTRAVI [Suspect]
     Active Substance: SELEXIPAG
     Indication: Product used for unknown indication
     Dosage: UNK
     Route: 065
  7. ADCIRCA [Concomitant]
     Active Substance: TADALAFIL
     Indication: Pulmonary arterial hypertension
     Dosage: UNK
     Route: 065
  8. OPSUMIT [Concomitant]
     Active Substance: MACITENTAN
     Indication: Product used for unknown indication
     Dosage: UNK
     Route: 065

REACTIONS (22)
  - Pain in extremity [Not Recovered/Not Resolved]
  - Breath sounds abnormal [Unknown]
  - Abdominal distension [Unknown]
  - Infusion site discomfort [Unknown]
  - Fatigue [Unknown]
  - Infusion site pain [Not Recovered/Not Resolved]
  - Device occlusion [Unknown]
  - Infusion site swelling [Unknown]
  - Infusion site erythema [Recovering/Resolving]
  - Infusion site warmth [Recovering/Resolving]
  - Infusion site haemorrhage [Unknown]
  - Device infusion issue [Unknown]
  - Infusion site infection [Unknown]
  - Device failure [Unknown]
  - Device failure [Unknown]
  - Device failure [Recovered/Resolved]
  - Device failure [Recovered/Resolved]
  - Device failure [Unknown]
  - Device infusion issue [Unknown]
  - Device failure [Unknown]
  - Infusion site bruising [Unknown]
  - Device dislocation [Recovered/Resolved]

NARRATIVE: CASE EVENT DATE: 20230101
